FAERS Safety Report 20891654 (Version 1)
Quarter: 2022Q2

REPORT INFORMATION
  Report Type: Spontaneous
  Country: US (occurrence: US)
  Receive Date: 20220530
  Receipt Date: 20220530
  Transmission Date: 20220721
  Serious: No
  Sender: FDA-Public Use
  Company Number: US-TRIS PHARMA, INC.-22US010236

PATIENT

DRUGS (1)
  1. QUILLIVANT XR [Suspect]
     Active Substance: METHYLPHENIDATE HYDROCHLORIDE
     Indication: Disturbance in attention
     Dosage: 0.5 MILLILITRE
     Dates: start: 202204

REACTIONS (5)
  - Agitation [Recovered/Resolved]
  - Crying [Recovered/Resolved]
  - Off label use [Unknown]
  - Underdose [Unknown]
  - Irritability [Unknown]

NARRATIVE: CASE EVENT DATE: 20220401
